FAERS Safety Report 9249647 (Version 1)
Quarter: 2013Q2

REPORT INFORMATION
  Report Type: Spontaneous
  Country: US (occurrence: US)
  Receive Date: 20130423
  Receipt Date: 20130423
  Transmission Date: 20140414
  Serious: No
  Sender: FDA-Public Use
  Company Number: US-BRISTOL-MYERS SQUIBB COMPANY-17324427

PATIENT
  Sex: Male

DRUGS (1)
  1. YERVOY [Suspect]
     Dosage: 4TH YERVOY TREATMENT ON 17JAN2013 WAS DELAYED.

REACTIONS (2)
  - Pruritus [Unknown]
  - Diarrhoea [Unknown]
